FAERS Safety Report 8788427 (Version 1)
Quarter: 2012Q4

REPORT INFORMATION
  Report Type: Report from Study
  Country: US (occurrence: US)
  Receive Date: 20120914
  Receipt Date: 20120914
  Transmission Date: 20130627
  Serious: No
  Sender: FDA-Public Use
  Company Number: US-VERTEX PHARMACEUTICAL INC.-AE-2012-011839

PATIENT
  Sex: Female
  Weight: 86.36 kg

DRUGS (11)
  1. INCIVEK [Suspect]
     Indication: HEPATITIS C
     Route: 048
  2. TOPROL XL [Concomitant]
  3. FISH OIL [Concomitant]
  4. CENTRUM [Concomitant]
  5. MIRALAX POW [Concomitant]
  6. LISINOPRIL/HCTZ [Concomitant]
  7. WELCHOL [Concomitant]
  8. AMLODIPINE [Concomitant]
  9. ZETIA [Concomitant]
  10. PLAVIX [Concomitant]
  11. NOVOLOG [Concomitant]

REACTIONS (1)
  - Anaemia [Unknown]
